FAERS Safety Report 8344979-4 (Version None)
Quarter: 2012Q2

REPORT INFORMATION
  Report Type: 
  Country: None (occurrence: None)
  Receive Date: 20120508
  Receipt Date: 20120424
  Transmission Date: 20120825
  Serious: Yes (Death)
  Sender: FDA-Public Use
  Company Number: FI-ELI_LILLY_AND_COMPANY-FI201204008971

PATIENT
  Sex: Male

DRUGS (1)
  1. OLANZAPINE [Suspect]

REACTIONS (1)
  - COMPLETED SUICIDE [None]
